FAERS Safety Report 10400834 (Version 1)
Quarter: 2014Q3

REPORT INFORMATION
  Report Type: Spontaneous
  Country: US (occurrence: US)
  Receive Date: 20140821
  Receipt Date: 20140821
  Transmission Date: 20150326
  Serious: No
  Sender: FDA-Public Use
  Company Number: US-ASTRAZENECA-2014SE17569

PATIENT
  Sex: Female

DRUGS (2)
  1. PREDNISONE. [Concomitant]
     Active Substance: PREDNISONE
  2. SYMBICORT [Suspect]
     Active Substance: BUDESONIDE\FORMOTEROL FUMARATE DIHYDRATE
     Dosage: DOSE: UNKNOWN, FREQUENCY: UNKNOWN
     Route: 055

REACTIONS (4)
  - Heart rate increased [Unknown]
  - Condition aggravated [Unknown]
  - Intentional product misuse [Unknown]
  - Adverse event [Unknown]
